FAERS Safety Report 17561758 (Version 1)
Quarter: 2020Q1

REPORT INFORMATION
  Report Type: Spontaneous
  Country: US (occurrence: US)
  Receive Date: 20200319
  Receipt Date: 20200319
  Transmission Date: 20200409
  Serious: No
  Sender: FDA-Public Use
  Company Number: US-PERRIGO-19US008477

PATIENT
  Age: 10 Year
  Sex: Male

DRUGS (1)
  1. LORATADINE AND PSEUDOEPHEDRINE SULFATE [Suspect]
     Active Substance: LORATADINE\PSEUDOEPHEDRINE SULFATE
     Indication: ACCIDENTAL EXPOSURE TO PRODUCT BY CHILD
     Dosage: 3 TABLETS, SINGLE
     Route: 048
     Dates: start: 20190709, end: 20190709

REACTIONS (1)
  - Overdose [Recovered/Resolved]

NARRATIVE: CASE EVENT DATE: 20190709
